FAERS Safety Report 7509679-9 (Version None)
Quarter: 2011Q2

REPORT INFORMATION
  Report Type: 
  Country: None (occurrence: None)
  Receive Date: 20110527
  Receipt Date: 20110515
  Transmission Date: 20111010
  Serious: Yes (Hospitalization, Other)
  Sender: FDA-Public Use
  Company Number: US-JNJFOC-20100807705

PATIENT
  Sex: Female
  Weight: 78.02 kg

DRUGS (6)
  1. WELLBUTRIN XL [Concomitant]
     Indication: DEPRESSION
     Route: 048
     Dates: start: 20070301
  2. USTEKINUMAB [Suspect]
     Indication: PSORIASIS
     Route: 058
     Dates: start: 20100925
  3. USTEKINUMAB [Suspect]
     Route: 058
     Dates: start: 20100825
  4. FORTAMET [Concomitant]
     Indication: POLYCYSTIC OVARIES
     Route: 048
     Dates: start: 20090101
  5. MULTI-VITAMINS [Concomitant]
  6. YASMIN [Concomitant]
     Indication: ORAL CONTRACEPTION
     Route: 048
     Dates: start: 20090301, end: 20100901

REACTIONS (5)
  - HEADACHE [None]
  - NAUSEA [None]
  - THROMBOSIS [None]
  - ANGIOPATHY [None]
  - OEDEMA [None]
